FAERS Safety Report 5735163-9 (Version None)
Quarter: 2008Q2

REPORT INFORMATION
  Report Type: 
  Country: None (occurrence: None)
  Receive Date: 20080512
  Receipt Date: 20080430
  Transmission Date: 20081010
  Serious: Yes (Other)
  Sender: FDA-Public Use
  Company Number: US-ELI_LILLY_AND_COMPANY-US200804007495

PATIENT
  Sex: Female

DRUGS (3)
  1. EVISTA [Suspect]
     Indication: OSTEOPOROSIS
     Dosage: 60 MG, UNK
  2. CALCIUM [Concomitant]
  3. VITAMIN D [Concomitant]

REACTIONS (7)
  - ASTHENOPIA [None]
  - CATARACT OPERATION [None]
  - EYE DISORDER [None]
  - GLAUCOMA [None]
  - OCULAR HYPERAEMIA [None]
  - SCAR [None]
  - VARICOSE VEIN [None]
